FAERS Safety Report 18821759 (Version 1)
Quarter: 2021Q1

REPORT INFORMATION
  Report Type: Spontaneous
  Country: US (occurrence: US)
  Receive Date: 20210202
  Receipt Date: 20210202
  Transmission Date: 20210419
  Serious: No
  Sender: FDA-Public Use
  Company Number: None

PATIENT
  Age: 55 Year
  Sex: Female
  Weight: 108.86 kg

DRUGS (1)
  1. HUMIRA [Suspect]
     Active Substance: ADALIMUMAB
     Indication: RHEUMATOID ARTHRITIS
     Route: 058

REACTIONS (8)
  - Rash [None]
  - Coxsackie viral infection [None]
  - Headache [None]
  - Myalgia [None]
  - Arthralgia [None]
  - Blister [None]
  - Oropharyngeal pain [None]
  - Pharyngeal ulceration [None]
